FAERS Safety Report 7701412-0 (Version None)
Quarter: 2011Q3

REPORT INFORMATION
  Report Type: 
  Country: None (occurrence: None)
  Receive Date: 20110819
  Receipt Date: 20110819
  Transmission Date: 20111222
  Serious: Yes (Hospitalization)
  Sender: FDA-Public Use
  Company Number: None

PATIENT
  Age: 69 Year
  Sex: Female
  Weight: 96.9 kg

DRUGS (8)
  1. LISINOPRIL [Suspect]
     Indication: HYPERTENSION
     Dosage: 20/12.5MG 1 TABS ONCE DAILY ORALLY
     Route: 048
     Dates: start: 20101002
  2. LISINOPRIL [Suspect]
     Indication: HYPERTENSION
     Dosage: 20/12.5MG 1 TABS ONCE DAILY ORALLY
     Route: 048
     Dates: start: 20110331
  3. MELOXACAN [Concomitant]
  4. MACROBID [Concomitant]
  5. FLUOXETINE [Concomitant]
  6. OMEPRAZOLE [Concomitant]
  7. ADVAIR DISKUS 100/50 [Concomitant]
  8. SIMAVASTATIN [Concomitant]

REACTIONS (6)
  - VOMITING [None]
  - NAUSEA [None]
  - CONFUSIONAL STATE [None]
  - MEDICAL DIET [None]
  - POLYDIPSIA [None]
  - HYPONATRAEMIA [None]
